FAERS Safety Report 17971655 (Version 1)
Quarter: 2020Q3

REPORT INFORMATION
  Report Type: Report from Study
  Country: MX (occurrence: MX)
  Receive Date: 20200701
  Receipt Date: 20200701
  Transmission Date: 20201103
  Serious: Yes (Hospitalization, Other)
  Sender: FDA-Public Use
  Company Number: NVSC2020MX185254

PATIENT
  Sex: Female

DRUGS (1)
  1. EXFORGE [Suspect]
     Active Substance: AMLODIPINE BESYLATE\VALSARTAN
     Indication: PRODUCT USED FOR UNKNOWN INDICATION
     Dosage: (320/5 MG)
     Route: 065

REACTIONS (5)
  - Memory impairment [Unknown]
  - Atrioventricular block [Unknown]
  - Terminal state [Unknown]
  - Chest pain [Unknown]
  - Inflammation [Unknown]
